FAERS Safety Report 20809452 (Version 1)
Quarter: 2022Q2

REPORT INFORMATION
  Report Type: Report from Study
  Country: US (occurrence: US)
  Receive Date: 20220510
  Receipt Date: 20220510
  Transmission Date: 20220721
  Serious: Yes (Hospitalization)
  Sender: FDA-Public Use
  Company Number: US-BRISTOL-MYERS SQUIBB COMPANY-2022-030031

PATIENT
  Age: 77 Year
  Sex: Female
  Weight: 70 kg

DRUGS (29)
  1. AZACITIDINE [Suspect]
     Active Substance: AZACITIDINE
     Indication: Myelodysplastic syndrome
     Dosage: 7 DAYS WITHIN THE FIRST 9 CALENDAR DAYS OF EACH 28 DAY CYCLE (75 MG/M2)
     Route: 058
     Dates: start: 20220131, end: 20220206
  2. AZACITIDINE [Suspect]
     Active Substance: AZACITIDINE
     Dosage: 7 DAYS WITHIN THE FIRST 9 CALENDAR DAYS OF EACH 28 DAY CYCLE (37.5 MG/M2)
     Route: 058
     Dates: start: 20220314
  3. VENETOCLAX [Suspect]
     Active Substance: VENETOCLAX
     Indication: Myelodysplastic syndrome
     Dosage: 14 DAYS ON, 14 DAYS OFF (400 MG,1 IN 1 D)
     Route: 048
     Dates: start: 20220131, end: 20220418
  4. TYLENOL [Concomitant]
     Active Substance: ACETAMINOPHEN
     Indication: Headache
     Dosage: 1500 MG (500 MG,3 IN MOL) 1 D)
     Route: 048
     Dates: start: 20191202
  5. TYLENOL [Concomitant]
     Active Substance: ACETAMINOPHEN
     Indication: Abdominal pain
  6. VITAMIN D3 [Concomitant]
     Active Substance: CHOLECALCIFEROL
     Indication: Nutritional supplementation
     Dosage: 2000 IU (1000 IU,2 IN 1 D)
     Route: 048
     Dates: start: 20150316
  7. ESTRACE [Concomitant]
     Active Substance: ESTRADIOL
     Indication: Atrophic vulvovaginitis
     Dosage: 0.1 MG,3 IN 1 WK
     Route: 067
     Dates: start: 20210108
  8. DOCUSATE SODIUM [Concomitant]
     Active Substance: DOCUSATE SODIUM
     Indication: Faeces hard
     Dosage: 2 TABLET (1 TABLET,2 IN 1 D)
     Route: 048
     Dates: start: 20190123
  9. LEVAQUIN [Concomitant]
     Active Substance: LEVOFLOXACIN
     Indication: Urinary tract infection
     Dosage: 500 MG (500 MG,1 IN 1 D)
     Route: 048
     Dates: start: 20220118
  10. LEVAQUIN [Concomitant]
     Active Substance: LEVOFLOXACIN
     Indication: Prophylaxis
  11. SYNTHROID [Concomitant]
     Active Substance: LEVOTHYROXINE SODIUM
     Indication: Hypothyroidism
     Dosage: 112 MCG (112 MCG,1 IN 1 D)
     Route: 048
     Dates: start: 20210909
  12. PRINZIDE [Concomitant]
     Active Substance: HYDROCHLOROTHIAZIDE\LISINOPRIL
     Indication: Hypertension
     Dosage: 1 TABLET (1 TABLET,1 IN 1 D)
     Route: 048
     Dates: start: 20210721
  13. MINERALS\VITAMINS [Concomitant]
     Active Substance: MINERALS\VITAMINS
     Indication: Nutritional supplementation
     Dosage: 1 TABLET
     Route: 048
     Dates: start: 20180914
  14. COMPAZINE [Concomitant]
     Active Substance: PROCHLORPERAZINE MALEATE
     Indication: Prophylaxis of nausea and vomiting
     Dosage: 10 MG,1 AS REQUIRED
     Route: 048
     Dates: start: 20220131
  15. ZOCOR [Concomitant]
     Active Substance: SIMVASTATIN
     Indication: Hyperlipidaemia
     Dosage: 10 MG (10 MG,1 IN 1 D)
     Route: 048
     Dates: start: 20030122
  16. CYANOCOBALAMIN [Concomitant]
     Active Substance: CYANOCOBALAMIN
     Indication: Nutritional supplementation
     Dosage: 1000 MCG,1 IN 1 D
     Route: 048
     Dates: start: 20181113
  17. MILK OF MAGNESIA [Concomitant]
     Active Substance: MAGNESIUM HYDROXIDE
     Indication: Constipation
     Dosage: 2-4 TABLESPOONS (1 AS REQUIRED)
     Route: 048
     Dates: start: 20220124
  18. ATIVAN [Concomitant]
     Active Substance: LORAZEPAM
     Indication: Prophylaxis
     Dosage: 0.5 MG,1 AS REQUIRED
     Route: 048
     Dates: start: 20220131
  19. ATIVAN [Concomitant]
     Active Substance: LORAZEPAM
     Indication: Prophylaxis of nausea and vomiting
  20. PATANOL [Concomitant]
     Active Substance: OLOPATADINE HYDROCHLORIDE
     Indication: Dry eye
     Dosage: 2 DROP (1 DROP,2 IN 1 D)
     Route: 031
     Dates: start: 20200914
  21. PATANOL [Concomitant]
     Active Substance: OLOPATADINE HYDROCHLORIDE
     Indication: Eye pruritus
  22. ZOFRAN [Concomitant]
     Active Substance: ONDANSETRON HYDROCHLORIDE
     Indication: Prophylaxis of nausea and vomiting
     Dosage: 8 MG,1 AS REQUIRED
     Route: 048
     Dates: start: 20220131
  23. SENNAKOT-S [Concomitant]
     Indication: Faeces hard
     Dosage: 4 TABLET (2 TABLET,2 IN 1 D)
     Route: 048
     Dates: start: 20220207
  24. SENNAKOT-S [Concomitant]
     Indication: Constipation
  25. TRAMADOL [Concomitant]
     Active Substance: TRAMADOL
     Indication: Headache
     Dosage: 50 MG,1 AS REQUIRED
     Route: 048
     Dates: start: 20220207
  26. TRAMADOL [Concomitant]
     Active Substance: TRAMADOL
     Indication: Abdominal pain
  27. TRAMADOL [Concomitant]
     Active Substance: TRAMADOL
     Indication: Arthralgia
  28. MIRALAX [Concomitant]
     Active Substance: POLYETHYLENE GLYCOL 3350
     Indication: Constipation
     Dosage: 17 GM (17 GM,1 IN 1 D)
     Route: 048
     Dates: start: 20220124
  29. HYDROCORTISONE [Concomitant]
     Active Substance: HYDROCORTISONE
     Indication: Injection site reaction
     Dosage: 1 APPLICATION (1 AS REQUIRED)
     Route: 061
     Dates: start: 20220203

REACTIONS (1)
  - Costochondritis [Recovered/Resolved]

NARRATIVE: CASE EVENT DATE: 20220418
